FAERS Safety Report 10277502 (Version 1)
Quarter: 2014Q3

REPORT INFORMATION
  Report Type: Report from Study
  Country: US (occurrence: US)
  Receive Date: 20140703
  Receipt Date: 20140703
  Transmission Date: 20150326
  Serious: Yes (Other)
  Sender: FDA-Public Use
  Company Number: US-ACTELION-A-NJ2014-101301

PATIENT
  Age: 70 Year
  Sex: Female

DRUGS (12)
  1. PREDNISOLONE. [Concomitant]
     Active Substance: PREDNISOLONE
     Dosage: 1 DROP, BOTH EYES
     Route: 047
     Dates: start: 2006
  2. CLARITIN [Concomitant]
     Active Substance: LORATADINE
     Dosage: 10 MG, PRN
  3. ALDACTONE [Concomitant]
     Active Substance: SPIRONOLACTONE
     Dosage: 25 MG, QD
     Dates: start: 2013
  4. BROMDAY [Concomitant]
     Active Substance: BROMFENAC SODIUM
     Dosage: 1 DROP, BID, LEFT EYE
     Route: 047
     Dates: start: 2010
  5. TRACLEER [Suspect]
     Active Substance: BOSENTAN\BOSENTAN MONOHYDRATE
     Dosage: 62.5 MG, BID
     Route: 048
     Dates: start: 200808, end: 2008
  6. SYNTHROID [Concomitant]
     Active Substance: LEVOTHYROXINE SODIUM
     Dosage: 88 UNK, UNK
     Dates: start: 1992
  7. LASIX [Concomitant]
     Active Substance: FUROSEMIDE
     Dosage: 40 MG, TWICE WEEKLY
  8. TRACLEER [Suspect]
     Active Substance: BOSENTAN\BOSENTAN MONOHYDRATE
     Indication: PULMONARY ARTERIAL HYPERTENSION
     Dosage: 125 MG, BID
     Route: 048
     Dates: start: 2008
  9. KLONOPIN [Concomitant]
     Active Substance: CLONAZEPAM
     Dosage: 0.5 MG, QD
     Dates: start: 1992
  10. NAPROSYN [Concomitant]
     Active Substance: NAPROXEN
     Dosage: 500 MG, PRN
  11. DOXEPIN [Concomitant]
     Active Substance: DOXEPIN
     Dosage: 50 MG, QD
     Dates: start: 1992
  12. BRIMONIDINE [Concomitant]
     Active Substance: BRIMONIDINE\BRIMONIDINE TARTRATE
     Dosage: 1 DROP, BID, LEFT EYE
     Route: 047
     Dates: start: 2010

REACTIONS (5)
  - Abdominal distension [Not Recovered/Not Resolved]
  - Eye disorder [Recovered/Resolved]
  - Dyspnoea [Not Recovered/Not Resolved]
  - Peripheral swelling [Not Recovered/Not Resolved]
  - Corneal transplant [Recovered/Resolved]

NARRATIVE: CASE EVENT DATE: 2010
